FAERS Safety Report 14219718 (Version 1)
Quarter: 2017Q4

REPORT INFORMATION
  Report Type: Spontaneous
  Country: US (occurrence: US)
  Receive Date: 20171123
  Receipt Date: 20171123
  Transmission Date: 20180321
  Serious: Yes (Hospitalization, Other)
  Sender: FDA-Public Use
  Company Number: US-AMGEN-USASP2017158817

PATIENT
  Age: 61 Year
  Sex: Female

DRUGS (1)
  1. PROLIA [Suspect]
     Active Substance: DENOSUMAB
     Indication: OSTEOPOROSIS POSTMENOPAUSAL
     Dosage: 60 MG, Q6MO
     Route: 058
     Dates: start: 201705

REACTIONS (8)
  - Staphylococcal infection [Unknown]
  - Sepsis [Unknown]
  - Furuncle [Not Recovered/Not Resolved]
  - Escherichia infection [Unknown]
  - Beta haemolytic streptococcal infection [Unknown]
  - Subcutaneous abscess [Unknown]
  - Cellulitis [Unknown]
  - Wound [Not Recovered/Not Resolved]

NARRATIVE: CASE EVENT DATE: 20170921
